FAERS Safety Report 16089882 (Version 1)
Quarter: 2019Q1

REPORT INFORMATION
  Report Type: Spontaneous
  Country: US (occurrence: US)
  Receive Date: 20190319
  Receipt Date: 20190319
  Transmission Date: 20190418
  Serious: No
  Sender: FDA-Public Use
  Company Number: US-AMGEN-USASP2019039175

PATIENT
  Age: 71 Year
  Sex: Female

DRUGS (1)
  1. PROLIA [Suspect]
     Active Substance: DENOSUMAB
     Indication: OSTEOPOROSIS
     Dosage: UNK
     Route: 065
     Dates: start: 20181004

REACTIONS (7)
  - Oropharyngeal pain [Recovered/Resolved]
  - Jaw disorder [Unknown]
  - Ear pain [Unknown]
  - Malaise [Unknown]
  - Dizziness [Unknown]
  - Tooth disorder [Unknown]
  - Back pain [Unknown]
